FAERS Safety Report 8509804-7 (Version None)
Quarter: 2012Q3

REPORT INFORMATION
  Report Type: 
  Country: None (occurrence: None)
  Receive Date: 20120713
  Receipt Date: 20120712
  Transmission Date: 20120928
  Serious: Yes (Hospitalization)
  Sender: FDA-Public Use
  Company Number: JP-009507513-1207JPN003548

PATIENT

DRUGS (4)
  1. AROGLYCEM [Suspect]
     Route: 048
     Dates: start: 20120702, end: 20120703
  2. AROGLYCEM [Suspect]
     Route: 048
     Dates: start: 20120628, end: 20120701
  3. AROGLYCEM [Suspect]
     Route: 048
     Dates: start: 20120704, end: 20120706
  4. AROGLYCEM [Suspect]
     Indication: HYPOGLYCAEMIA
     Route: 048
     Dates: start: 20120625, end: 20120627

REACTIONS (1)
  - PLATELET COUNT DECREASED [None]
